FAERS Safety Report 10591874 (Version 1)
Quarter: 2014Q4

REPORT INFORMATION
  Report Type: Spontaneous
  Country: GR (occurrence: GR)
  Receive Date: 20141119
  Receipt Date: 20141119
  Transmission Date: 20150529
  Serious: Yes (Life-Threatening, Hospitalization, Other)
  Sender: FDA-Public Use
  Company Number: GR-ROCHE-1491891

PATIENT
  Age: 65 Year
  Sex: Male
  Weight: 96 kg

DRUGS (3)
  1. OXALIPLATIN. [Suspect]
     Active Substance: OXALIPLATIN
     Indication: COLORECTAL CANCER
     Dosage: THE PRESCRIBED DOSE WAS 220MG BUT ONLY 12MG WERE ADMINISTERED
     Route: 041
     Dates: start: 20141030, end: 20141030
  2. DEXATON [Concomitant]
     Route: 042
     Dates: start: 20141030, end: 20141030
  3. AVASTIN [Suspect]
     Active Substance: BEVACIZUMAB
     Indication: COLORECTAL CANCER
     Route: 041
     Dates: start: 20141030, end: 20141030

REACTIONS (1)
  - Acute coronary syndrome [Recovering/Resolving]

NARRATIVE: CASE EVENT DATE: 20141030
